FAERS Safety Report 20251022 (Version 2)
Quarter: 2022Q4

REPORT INFORMATION
  Report Type: Spontaneous
  Country: US (occurrence: US)
  Receive Date: 20211229
  Receipt Date: 20221228
  Transmission Date: 20230113
  Serious: No
  Sender: FDA-Public Use
  Company Number: US-CLOVIS ONCOLOGY-CLO-2021-000989

PATIENT
  Age: 75 Year
  Sex: Female

DRUGS (2)
  1. RUBRACA [Suspect]
     Active Substance: RUCAPARIB CAMSYLATE
     Indication: Ovarian cancer
     Dosage: 200 MG QAM/400 MG QPM
     Route: 048
     Dates: start: 20200604
  2. MIRALAX [Concomitant]
     Active Substance: POLYETHYLENE GLYCOL 3350
     Indication: Product used for unknown indication
     Dosage: QPM

REACTIONS (16)
  - Hernia [Unknown]
  - Urinary tract infection [Recovered/Resolved]
  - Functional gastrointestinal disorder [Unknown]
  - Hypotension [Unknown]
  - Heart rate decreased [Unknown]
  - Renal function test abnormal [Not Recovered/Not Resolved]
  - Cystine urine present [Unknown]
  - Device physical property issue [Unknown]
  - Dyschezia [Not Recovered/Not Resolved]
  - Infrequent bowel movements [Not Recovered/Not Resolved]
  - Gastrointestinal pain [Unknown]
  - Bowel movement irregularity [Not Recovered/Not Resolved]
  - Constipation [Unknown]
  - Blood creatinine increased [Unknown]
  - Asthenia [Unknown]
  - Product dose omission issue [Unknown]

NARRATIVE: CASE EVENT DATE: 20211101
